FAERS Safety Report 10065216 (Version 1)
Quarter: 2014Q2

REPORT INFORMATION
  Report Type: Spontaneous
  Country: US (occurrence: None)
  Receive Date: 20140404
  Receipt Date: 20140404
  Transmission Date: 20141212
  Serious: Yes (Hospitalization)
  Sender: FDA-Public Use
  Company Number: 2014US00321

PATIENT
  Age: 13 Year
  Sex: Female

DRUGS (2)
  1. AMLODIPINE (AMLODIPINE) [Suspect]
     Indication: RESPIRATORY DISORDER
  2. FUROSEMIDE (FUROSEMIDE) [Suspect]
     Indication: BLOOD PRESSURE INCREASED

REACTIONS (2)
  - Proteinuria [None]
  - Renal failure acute [None]
